FAERS Safety Report 24773510 (Version 2)
Quarter: 2025Q1

REPORT INFORMATION
  Report Type: Spontaneous
  Country: JP (occurrence: JP)
  Receive Date: 20241225
  Receipt Date: 20250128
  Transmission Date: 20250409
  Serious: No
  Sender: ROCHE
  Company Number: JP-ROCHE-10000164227

PATIENT
  Age: 74 Year
  Sex: Female

DRUGS (1)
  1. RITUXIMAB [Suspect]
     Active Substance: RITUXIMAB
     Indication: Polymyositis
     Route: 040

REACTIONS (2)
  - Off label use [Unknown]
  - No adverse event [Unknown]
